FAERS Safety Report 7837101-1 (Version None)
Quarter: 2011Q4

REPORT INFORMATION
  Report Type: 
  Country: None (occurrence: None)
  Receive Date: 20111024
  Receipt Date: 20110822
  Transmission Date: 20120403
  Serious: No
  Sender: FDA-Public Use
  Company Number: US-ABBOTT-11P-163-0848789-00

PATIENT
  Sex: Female
  Weight: 53.572 kg

DRUGS (1)
  1. LUPRON DEPOT [Suspect]
     Indication: ENDOMETRIOSIS
     Dates: start: 20110726

REACTIONS (7)
  - EMOTIONAL DISORDER [None]
  - FRUSTRATION [None]
  - MOOD SWINGS [None]
  - CRYING [None]
  - MENTAL DISORDER [None]
  - NIGHT SWEATS [None]
  - FEELING ABNORMAL [None]
